FAERS Safety Report 7953764-4 (Version None)
Quarter: 2011Q4

REPORT INFORMATION
  Report Type: 
  Country: None (occurrence: None)
  Receive Date: 20111202
  Receipt Date: 20111128
  Transmission Date: 20120403
  Serious: Yes (Death, Life-Threatening, Hospitalization)
  Sender: FDA-Public Use
  Company Number: KR-GENZYME-MOZO-1000581

PATIENT
  Sex: Male
  Weight: 20.4 kg

DRUGS (2)
  1. MOZOBIL [Suspect]
     Indication: HAEMATOPOIETIC STEM CELL MOBILISATION
     Dosage: 4.7 MG, QD
     Route: 058
     Dates: start: 20101114, end: 20101115
  2. NEUPOGEN [Concomitant]
     Indication: HAEMATOPOIETIC STEM CELL MOBILISATION
     Dosage: 225 MCG, UNK
     Route: 058
     Dates: start: 20101111, end: 20101116

REACTIONS (2)
  - FEBRILE NEUTROPENIA [None]
  - INTERSTITIAL LUNG DISEASE [None]
